FAERS Safety Report 5125506-1 (Version None)
Quarter: 2006Q3

REPORT INFORMATION
  Report Type: 
  Country: None (occurrence: None)
  Receive Date: 20060822
  Receipt Date: 20060627
  Transmission Date: 20061208
  Serious: No
  Sender: FDA-Public Use
  Company Number: PHEH2006US08582

PATIENT

DRUGS (2)
  1. ENABLEX [Suspect]
     Dosage: SEE IMAGE
  2. PRILOSEC [Concomitant]

REACTIONS (1)
  - DYSPEPSIA [None]
